FAERS Safety Report 7154408-4 (Version None)
Quarter: 2010Q4

REPORT INFORMATION
  Report Type: 
  Country: None (occurrence: None)
  Receive Date: 20101213
  Receipt Date: 20101209
  Transmission Date: 20110411
  Serious: Yes (Hospitalization, Other)
  Sender: FDA-Public Use
  Company Number: US-B.I. PHARMACEUTICALS,INC./RIDGEFIELD-2010-BP-13547BP

PATIENT
  Age: 66 Year
  Sex: Male

DRUGS (21)
  1. PRADAXA [Suspect]
     Indication: ATRIAL FIBRILLATION
     Dosage: 300 MG
     Route: 048
     Dates: start: 20101123, end: 20101201
  2. AMIODARONE [Concomitant]
     Indication: ATRIAL FIBRILLATION
  3. SYNTHROID [Concomitant]
     Indication: THYROID DISORDER
  4. TOPROL-XL [Concomitant]
     Indication: HYPERTENSION
  5. DIOVAN [Concomitant]
     Indication: HYPERTENSION
  6. LIPITOR [Concomitant]
     Indication: BLOOD CHOLESTEROL INCREASED
  7. ACIPHEX [Concomitant]
     Indication: GASTROOESOPHAGEAL REFLUX DISEASE
  8. ASPIRIN [Concomitant]
     Indication: ATRIAL FIBRILLATION
     Dosage: 81 MG
  9. GENERIC FLOMAX - TEVA [Concomitant]
     Indication: URINARY TRACT DISORDER
  10. PROSCAR [Concomitant]
     Indication: URINARY TRACT DISORDER
  11. LASIX [Concomitant]
     Indication: CARDIAC DISORDER
  12. ZETIA [Concomitant]
     Indication: BLOOD CHOLESTEROL INCREASED
  13. NOVOLOG [Concomitant]
     Indication: DIABETES MELLITUS
  14. LANTUS [Concomitant]
     Indication: DIABETES MELLITUS
  15. ALLOPURINOL [Concomitant]
     Indication: GOUT
  16. COLCHICINE [Concomitant]
     Indication: GOUT
  17. NIASPAN [Concomitant]
     Indication: BLOOD CHOLESTEROL INCREASED
  18. FOLIC ACID [Concomitant]
     Indication: PROPHYLAXIS
  19. MULTI-VITAMIN [Concomitant]
     Indication: PROPHYLAXIS
  20. LOVASA [Concomitant]
     Indication: METABOLIC DISORDER
  21. VITAMIN D [Concomitant]
     Indication: PROPHYLAXIS

REACTIONS (6)
  - ABDOMINAL DISTENSION [None]
  - ANORECTAL DISCOMFORT [None]
  - EPISTAXIS [None]
  - FLATULENCE [None]
  - HAEMATOCHEZIA [None]
  - SKIN IRRITATION [None]
